FAERS Safety Report 5931394-3 (Version None)
Quarter: 2008Q4

REPORT INFORMATION
  Report Type: 
  Country: None (occurrence: None)
  Receive Date: 20081027
  Receipt Date: 20081014
  Transmission Date: 20090506
  Serious: Yes (Hospitalization)
  Sender: FDA-Public Use
  Company Number: FR-ROCHE-591936

PATIENT
  Sex: Female

DRUGS (4)
  1. ROCEPHIN [Suspect]
     Indication: COUGH
     Route: 030
     Dates: end: 20080814
  2. AUGMENTIN '125' [Suspect]
     Indication: COUGH
     Route: 048
  3. FOSAMAX [Concomitant]
  4. CACIT D3 [Concomitant]
     Dosage: DRUG: CACIT VITAMINE D3

REACTIONS (4)
  - ANOREXIA [None]
  - COLITIS [None]
  - DIARRHOEA [None]
  - WEIGHT DECREASED [None]
